FAERS Safety Report 6238357-1 (Version None)
Quarter: 2009Q2

REPORT INFORMATION
  Report Type: 
  Country: None (occurrence: None)
  Receive Date: 20090622
  Receipt Date: 20090612
  Transmission Date: 20091009
  Serious: Yes (Other)
  Sender: FDA-Public Use
  Company Number: US-BAYER-200923692NA

PATIENT
  Age: 31 Year
  Sex: Female

DRUGS (1)
  1. MIRENA [Suspect]
     Indication: CONTRACEPTION
     Dosage: CONTINUOUS
     Route: 015
     Dates: start: 20070501, end: 20090608

REACTIONS (6)
  - ADNEXA UTERI PAIN [None]
  - FEELING ABNORMAL [None]
  - HYPOMENORRHOEA [None]
  - IUCD COMPLICATION [None]
  - OVARIAN CYST [None]
  - SMEAR CERVIX ABNORMAL [None]
